FAERS Safety Report 5965492-5 (Version None)
Quarter: 2008Q4

REPORT INFORMATION
  Report Type: 
  Country: None (occurrence: None)
  Receive Date: 20081125
  Receipt Date: 20081020
  Transmission Date: 20090506
  Serious: No
  Sender: FDA-Public Use
  Company Number: US-AMGEN-KDL313043

PATIENT
  Sex: Female
  Weight: 96.2 kg

DRUGS (13)
  1. ENBREL [Suspect]
     Indication: RHEUMATOID ARTHRITIS
     Route: 058
     Dates: start: 20080107
  2. SULFASALAZINE [Concomitant]
     Route: 048
     Dates: start: 20050801
  3. OXYCONTIN [Concomitant]
  4. CALCITONIN SALMON [Concomitant]
     Dates: start: 20050317
  5. PREVACID [Concomitant]
     Dates: start: 20051021
  6. AVAPRO [Concomitant]
  7. ATENOLOL [Concomitant]
  8. TYLENOL (CAPLET) [Concomitant]
  9. PROZAC [Concomitant]
  10. POTASSIUM CHLORIDE [Concomitant]
  11. DYAZIDE [Concomitant]
  12. CALCIUM [Concomitant]
  13. VITAMIN D [Concomitant]

REACTIONS (5)
  - BLOOD CREATININE INCREASED [None]
  - CYSTITIS [None]
  - RHEUMATOID ARTHRITIS [None]
  - ULCERATIVE KERATITIS [None]
  - URINARY TRACT INFECTION [None]
